FAERS Safety Report 16324127 (Version 5)
Quarter: 2019Q2

REPORT INFORMATION
  Report Type: Spontaneous
  Country: CN (occurrence: CN)
  Receive Date: 20190517
  Receipt Date: 20190611
  Transmission Date: 20190711
  Serious: Yes (Other)
  Sender: FDA-Public Use
  Company Number: CN-ASTRAZENECA-2019SE72796

PATIENT
  Sex: Male
  Weight: 67.5 kg

DRUGS (5)
  1. SYMBICORT [Suspect]
     Active Substance: BUDESONIDE\FORMOTEROL FUMARATE DIHYDRATE
     Indication: ASTHMA
     Dosage: 160 4.5; TWO TIMES A DAY
     Route: 055
     Dates: start: 201905, end: 201905
  2. SYMBICORT [Suspect]
     Active Substance: BUDESONIDE\FORMOTEROL FUMARATE DIHYDRATE
     Indication: ASTHMA
     Dosage: ONCE A DAY
     Route: 055
     Dates: start: 201905, end: 20190522
  3. MONTELUKAST [Concomitant]
     Active Substance: MONTELUKAST SODIUM
     Indication: ASTHMA
  4. SYMBICORT [Suspect]
     Active Substance: BUDESONIDE\FORMOTEROL FUMARATE DIHYDRATE
     Indication: ASTHMA
     Dosage: 160 UG, DAILY
     Route: 055
     Dates: start: 20190517, end: 201905
  5. SYMBICORT [Suspect]
     Active Substance: BUDESONIDE\FORMOTEROL FUMARATE DIHYDRATE
     Indication: ASTHMA
     Dosage: 160 4.5; TWO TIMES A DAY, ONE INHALATION ONCE
     Route: 055
     Dates: start: 201904, end: 201905

REACTIONS (13)
  - Nausea [Recovering/Resolving]
  - Fatigue [Recovering/Resolving]
  - Gastrointestinal disorder [Unknown]
  - Dysphonia [Unknown]
  - Feeding disorder [Recovering/Resolving]
  - Cough [Recovered/Resolved]
  - Seizure [Recovering/Resolving]
  - Diarrhoea [Recovered/Resolved]
  - Throat irritation [Not Recovered/Not Resolved]
  - Insomnia [Recovered/Resolved]
  - Pharyngitis [Not Recovered/Not Resolved]
  - Weight decreased [Unknown]
  - Listless [Unknown]

NARRATIVE: CASE EVENT DATE: 201904
